FAERS Safety Report 9706591 (Version 1)
Quarter: 2013Q4

REPORT INFORMATION
  Report Type: Spontaneous
  Country: US (occurrence: US)
  Receive Date: 20131125
  Receipt Date: 20131125
  Transmission Date: 20140711
  Serious: Yes (Other)
  Sender: FDA-Public Use
  Company Number: US-JNJFOC-20131108386

PATIENT
  Age: 54 Year
  Sex: Female
  Weight: 65.77 kg

DRUGS (3)
  1. BENADRYL TOPICAL EXTRA STRENGTH CREAM [Suspect]
     Indication: RASH
     Dosage: A PEA SIZE
     Route: 061
     Dates: start: 20131101, end: 20131101
  2. OMEPRAZOLE [Concomitant]
     Indication: GASTROOESOPHAGEAL REFLUX DISEASE
     Route: 065
     Dates: start: 2003
  3. CENTRUM NOS [Concomitant]
     Indication: ROUTINE HEALTH MAINTENANCE
     Route: 065

REACTIONS (2)
  - Blister [Not Recovered/Not Resolved]
  - Pain in extremity [Not Recovered/Not Resolved]
